FAERS Safety Report 18308337 (Version 1)
Quarter: 2020Q3

REPORT INFORMATION
  Report Type: Report from Study
  Country: US (occurrence: US)
  Receive Date: 20200924
  Receipt Date: 20200924
  Transmission Date: 20201103
  Serious: Yes (Hospitalization)
  Sender: FDA-Public Use
  Company Number: US-PFIZER INC-2020363856

PATIENT
  Age: 55 Year
  Sex: Male
  Weight: 102.4 kg

DRUGS (2)
  1. ENCORAFENIB [Suspect]
     Active Substance: ENCORAFENIB
     Indication: PROSTATE CANCER
     Dosage: 450 MG, QD
     Route: 048
     Dates: start: 20200724, end: 20200914
  2. BINIMETINIB [Suspect]
     Active Substance: BINIMETINIB
     Indication: PROSTATE CANCER
     Dosage: 60 MG, QD
     Route: 048
     Dates: start: 20200724, end: 20200914

REACTIONS (3)
  - Acute kidney injury [Not Recovered/Not Resolved]
  - Vomiting [Not Recovered/Not Resolved]
  - Diarrhoea [Not Recovered/Not Resolved]

NARRATIVE: CASE EVENT DATE: 20200915
